FAERS Safety Report 13135097 (Version 2)
Quarter: 2019Q3

REPORT INFORMATION
  Report Type: Spontaneous
  Country: US (occurrence: US)
  Receive Date: 20170120
  Receipt Date: 20190903
  Transmission Date: 20191004
  Serious: Yes (Other)
  Sender: FDA-Public Use
  Company Number: US-OTSUKA-2017_000742

PATIENT
  Age: 17 Year
  Sex: Male

DRUGS (3)
  1. TOLVAPTAN [Suspect]
     Active Substance: TOLVAPTAN
     Indication: ECTOPIC ANTIDIURETIC HORMONE SECRETION
     Dosage: 15 MG, UNK
     Route: 065
  2. TOLVAPTAN [Suspect]
     Active Substance: TOLVAPTAN
     Indication: GANGLIONEUROMA
  3. TOLVAPTAN [Suspect]
     Active Substance: TOLVAPTAN
     Indication: HYPONATRAEMIA

REACTIONS (5)
  - Osmotic demyelination syndrome [Recovering/Resolving]
  - Product use issue [Unknown]
  - Rapid correction of hyponatraemia [Recovering/Resolving]
  - Mental status changes [Recovering/Resolving]
  - Seizure [Recovering/Resolving]
